FAERS Safety Report 5849629-4 (Version None)
Quarter: 2008Q3

REPORT INFORMATION
  Report Type: 
  Country: None (occurrence: None)
  Receive Date: 20080819
  Receipt Date: 20080812
  Transmission Date: 20090109
  Serious: Yes (Death)
  Sender: FDA-Public Use
  Company Number: NL-AVENTIS-200817667GDDC

PATIENT
  Age: 67 Year
  Sex: Male
  Weight: 97 kg

DRUGS (3)
  1. TAXOTERE [Suspect]
     Route: 042
     Dates: start: 20080722, end: 20080722
  2. ZOMETA [Concomitant]
  3. PREDNISON [Concomitant]
     Dates: start: 20080610

REACTIONS (1)
  - SUDDEN CARDIAC DEATH [None]
